FAERS Safety Report 4897694-3 (Version None)
Quarter: 2006Q1

REPORT INFORMATION
  Report Type: 
  Country: None (occurrence: None)
  Receive Date: 20060130
  Receipt Date: 20060130
  Transmission Date: 20060701
  Serious: Yes (Other)
  Sender: FDA-Public Use
  Company Number: None

PATIENT
  Age: 59 Year
  Sex: Female
  Weight: 72.5755 kg

DRUGS (2)
  1. ARMOUR THYROID 120 MG FOREST PHARMACEUTICAL INC [Suspect]
     Indication: HYPOTHYROIDISM
     Dosage: 1 DAILY PO
     Route: 048
     Dates: start: 20060110, end: 20060120
  2. ARMOUR THYROID 120 MG FOREST PHARMACEUTICAL INC [Suspect]
     Indication: HYPOTHYROIDISM

REACTIONS (8)
  - ABNORMAL BEHAVIOUR [None]
  - AGITATION [None]
  - ANGER [None]
  - DEPRESSION [None]
  - FATIGUE [None]
  - INSOMNIA [None]
  - PAIN [None]
  - PHARMACEUTICAL PRODUCT COMPLAINT [None]
